FAERS Safety Report 23524515 (Version 1)
Quarter: 2024Q1

REPORT INFORMATION
  Report Type: Spontaneous
  Country: BR (occurrence: BR)
  Receive Date: 20240214
  Receipt Date: 20240214
  Transmission Date: 20240410
  Serious: Yes (Other)
  Sender: FDA-Public Use
  Company Number: BR-BAXTER-2024BAX012413

PATIENT
  Age: 18 Year
  Sex: Female
  Weight: 50 kg

DRUGS (5)
  1. IRON [Suspect]
     Active Substance: IRON
     Indication: Mineral supplementation
     Dosage: 2 AMPOULES DILUTED IN 250 ML OF 0.9% OF SALINE IN ONE HOUR, ONCE A WEEK FOR 5 WEEKS, WITH A TOTAL OF
     Route: 042
     Dates: start: 20240131, end: 20240131
  2. SODIUM CHLORIDE [Suspect]
     Active Substance: SODIUM CHLORIDE
     Indication: Medication dilution
     Dosage: 250 ML OF 0.9% SALINE SOLUTION USED TO DILUTE 2 AMPOULES OF SUCROFER IN ONE HOUR,  ONCE A WEEK FOR 5
     Route: 042
     Dates: start: 20240131, end: 20240131
  3. SODIUM CHLORIDE [Suspect]
     Active Substance: SODIUM CHLORIDE
     Indication: Drug therapy
     Dosage: 500 ML AT AN UNSPECIFIED FREQUENCY (SOLUTION)
     Route: 042
     Dates: start: 20240131, end: 20240131
  4. MIRTAZAPINE [Suspect]
     Active Substance: MIRTAZAPINE
     Dosage: UNK
     Route: 048
     Dates: start: 20240112, end: 20240131
  5. EPINEPHRINE [Suspect]
     Active Substance: EPINEPHRINE
     Indication: Drug therapy
     Dosage: 0.3 ML AT AN UNSPECIFIED FREQUENCY INTO THE VASTUS LATERALIS OF THE THIGH
     Route: 030
     Dates: start: 20240131, end: 20240131

REACTIONS (13)
  - Papule [Recovered/Resolved]
  - Cyanosis [Recovered/Resolved]
  - Respiratory rate increased [Recovered/Resolved]
  - Poor peripheral circulation [Recovered/Resolved]
  - Capillary nail refill test abnormal [Recovered/Resolved]
  - Paraesthesia [Recovered/Resolved]
  - Oedema peripheral [Recovered/Resolved]
  - Back pain [Recovered/Resolved]
  - Dyspnoea [Recovered/Resolved]
  - Syncope [Recovered/Resolved]
  - Nausea [Recovered/Resolved]
  - Hypotension [Recovered/Resolved]
  - Product administration error [Unknown]

NARRATIVE: CASE EVENT DATE: 20240131
